FAERS Safety Report 4370802-9 (Version None)
Quarter: 2004Q2

REPORT INFORMATION
  Report Type: 
  Country: None (occurrence: None)
  Receive Date: 20040601
  Receipt Date: 20040514
  Transmission Date: 20050107
  Serious: Yes (Hospitalization)
  Sender: FDA-Public Use
  Company Number: 2004SE02334

PATIENT
  Age: 58 Year
  Sex: Female

DRUGS (2)
  1. SPIROCORT [Suspect]
     Indication: ASTHMA
     Dosage: 400 MG BID IH
     Route: 055
     Dates: start: 20040323, end: 20040329
  2. BRICANYL [Concomitant]

REACTIONS (2)
  - DYSPNOEA [None]
  - URTICARIA [None]
